FAERS Safety Report 7443083-7 (Version None)
Quarter: 2011Q2

REPORT INFORMATION
  Report Type: 
  Country: None (occurrence: None)
  Receive Date: 20110428
  Receipt Date: 20110419
  Transmission Date: 20111010
  Serious: Yes (Death, Hospitalization, Other)
  Sender: FDA-Public Use
  Company Number: US-ELI_LILLY_AND_COMPANY-US201102006573

PATIENT
  Sex: Male
  Weight: 65.76 kg

DRUGS (10)
  1. ALIMTA [Suspect]
     Indication: LUNG ADENOCARCINOMA METASTATIC
     Dosage: 800 MG, ONCE
     Route: 042
     Dates: start: 20101217, end: 20110101
  2. CARBOPLATIN [Concomitant]
     Indication: LUNG ADENOCARCINOMA METASTATIC
     Dosage: UNK
     Dates: start: 20101217
  3. DILAUDID [Concomitant]
     Indication: PAIN
     Dosage: UNK UNK, OTHER
     Route: 050
  4. CORTICOSTEROIDS [Concomitant]
     Dosage: 4 MG, BID
     Route: 048
     Dates: start: 20101216
  5. MORPHINE [Concomitant]
     Route: 058
  6. FOLIC ACID [Concomitant]
     Dosage: 1 NG, QD
     Route: 048
     Dates: start: 20101213
  7. FENTANYL [Concomitant]
     Indication: PAIN
     Dosage: 100 UG, EVERY HOUR
  8. AVASTIN [Concomitant]
     Indication: LUNG ADENOCARCINOMA METASTATIC
  9. VIT B12 [Concomitant]
     Dosage: 1000 MG, UNK
     Route: 058
     Dates: start: 20101213
  10. ZOLEDRONIC ACID [Concomitant]

REACTIONS (4)
  - ORAL CANDIDIASIS [None]
  - PNEUMONIA [None]
  - PLEURAL EFFUSION [None]
  - NEOPLASM MALIGNANT [None]
